FAERS Safety Report 16012784 (Version 1)
Quarter: 2019Q1

REPORT INFORMATION
  Report Type: Spontaneous
  Country: FR (occurrence: FR)
  Receive Date: 20190227
  Receipt Date: 20190227
  Transmission Date: 20190418
  Serious: Yes (Hospitalization)
  Sender: FDA-Public Use
  Company Number: FR-TEVA-2019-FR-1016519

PATIENT
  Age: 81 Year
  Sex: Female

DRUGS (2)
  1. CETORNAN (ORNITHINE OXOGLURATE) [Suspect]
     Active Substance: ORNITHINE OXOGLURATE
     Route: 048
     Dates: start: 20140627
  2. FLUCONAZOLE. [Suspect]
     Active Substance: FLUCONAZOLE
     Indication: FUNGAL INFECTION
     Route: 048

REACTIONS (1)
  - Vascular purpura [Not Recovered/Not Resolved]

NARRATIVE: CASE EVENT DATE: 20140721
